FAERS Safety Report 21028827 (Version 5)
Quarter: 2022Q4

REPORT INFORMATION
  Report Type: Report from Study
  Country: ES (occurrence: ES)
  Receive Date: 20220630
  Receipt Date: 20221117
  Transmission Date: 20230113
  Serious: Yes (Death, Life-Threatening, Hospitalization, Other)
  Sender: FDA-Public Use
  Company Number: ES-BRISTOL-MYERS SQUIBB COMPANY-2022-064759

PATIENT
  Age: 70 Year
  Sex: Female
  Weight: 60 kg

DRUGS (12)
  1. FEDRATINIB [Suspect]
     Active Substance: FEDRATINIB
     Indication: Primary myelofibrosis
     Dosage: MOST RECENT DOSE RECEIVED ON 24-JUN-2022.?DRUG INTERRUPTED
     Route: 048
     Dates: start: 20220620
  2. EPO ALFA [Concomitant]
     Indication: Anaemia
     Dosage: 4000 UNIT TWICE IN A WEEK
     Route: 058
  3. ALLOPURINOL [Concomitant]
     Active Substance: ALLOPURINOL
     Indication: Urine uric acid abnormal
     Dosage: FREQUENCY: 1 IN 24 UNKNOWN FREQUENCY TIME
     Route: 048
  4. LEVOTHYROXINE SODIUM [Concomitant]
     Active Substance: LEVOTHYROXINE SODIUM
     Indication: Hypothyroidism
     Dosage: FREQUENCY: 1 IN 24 UNKNOWN FREQUENCY TIME
     Route: 048
  5. FUROSEMIDE [Concomitant]
     Active Substance: FUROSEMIDE
     Indication: Hypertension
     Dosage: FREQUENCY: 1 IN 24 UNKNOWN FREQUENCY TIME
     Route: 048
  6. HYDROCHLOROTHIAZIDE [Concomitant]
     Active Substance: HYDROCHLOROTHIAZIDE
     Indication: Hypertension
     Dosage: FREQUENCY: 1 IN 24 UNKNOWN FREQUENCY TIME
     Route: 048
  7. LOSARTAN [Concomitant]
     Active Substance: LOSARTAN
     Indication: Hypertension
     Dosage: FREQUENCY: 1 IN 24 UNKNOWN FREQUENCY TIME
     Route: 048
  8. METFORMIN HYDROCHLORIDE [Concomitant]
     Active Substance: METFORMIN HYDROCHLORIDE
     Indication: Type 1 diabetes mellitus
     Dosage: FREQUENCY 1 IN 12 FREQUENCY UNKNOWN TIME
     Route: 048
  9. OMEPRAZOLE [Concomitant]
     Active Substance: OMEPRAZOLE
     Indication: Prophylaxis
     Dosage: FREQUENCY 1 IN 12 FREQUENCY UNKNOWN TIME
     Route: 048
  10. PRAVASTATIN SODIUM [Concomitant]
     Active Substance: PRAVASTATIN SODIUM
     Indication: Dyslipidaemia
     Dosage: FREQUENCY 1 IN 12 FREQUENCY UNKNOWN TIME
  11. SITAGLIPTIN [Concomitant]
     Active Substance: SITAGLIPTIN
     Indication: Acute myocardial infarction
     Dosage: FREQUENCY 1 IN 12 FREQUENCY UNKNOWN TIME
     Route: 048
  12. TIAMINA [Concomitant]
     Indication: Vitamin supplementation
     Route: 048

REACTIONS (5)
  - Renal failure [Not Recovered/Not Resolved]
  - Cardiac failure [Not Recovered/Not Resolved]
  - COVID-19 [Not Recovered/Not Resolved]
  - Metabolic encephalopathy [Not Recovered/Not Resolved]
  - Multiple organ dysfunction syndrome [Fatal]

NARRATIVE: CASE EVENT DATE: 20220624
